FAERS Safety Report 10997011 (Version 1)
Quarter: 2015Q2

REPORT INFORMATION
  Report Type: Spontaneous
  Country: US (occurrence: None)
  Receive Date: 20150407
  Receipt Date: 20150407
  Transmission Date: 20150821
  Serious: Yes (Other)
  Sender: FDA-Public Use
  Company Number: None

PATIENT
  Age: 52 Year
  Sex: Female
  Weight: 58.06 kg

DRUGS (3)
  1. FOSAMAX [Suspect]
     Active Substance: ALENDRONATE SODIUM
     Indication: OSTEOPOROSIS PROPHYLAXIS
     Dosage: TAKE 1 TABLET 30 TO 60 MIN PRI 1 A WEEK TAKEN BY MOUTH
     Route: 048
     Dates: start: 20150101, end: 20150406
  2. FOSAMAX [Suspect]
     Active Substance: ALENDRONATE SODIUM
     Indication: OSTEOPOROSIS
     Dosage: TAKE 1 TABLET 30 TO 60 MIN PRI 1 A WEEK TAKEN BY MOUTH
     Route: 048
     Dates: start: 20150101, end: 20150406
  3. VITAMIN D [Concomitant]
     Active Substance: CHOLECALCIFEROL

REACTIONS (5)
  - Oesophageal disorder [None]
  - Myalgia [None]
  - Bone pain [None]
  - Arthralgia [None]
  - Muscle swelling [None]

NARRATIVE: CASE EVENT DATE: 20150302
